FAERS Safety Report 16306077 (Version 2)
Quarter: 2019Q2

REPORT INFORMATION
  Report Type: Spontaneous
  Country: US (occurrence: US)
  Receive Date: 20190513
  Receipt Date: 20190605
  Transmission Date: 20190711
  Serious: Yes (Hospitalization, Other)
  Sender: FDA-Public Use
  Company Number: US-PFIZER INC-2019195553

PATIENT
  Age: 42 Year
  Sex: Male
  Weight: 81.65 kg

DRUGS (3)
  1. ADVIL [Suspect]
     Active Substance: IBUPROFEN
     Indication: SPORTS INJURY
     Dosage: 400 MG, UNK (2 TABLETS 200MG 4 OR 5X A WEEK)
     Dates: start: 199207, end: 199212
  2. ADVIL [Suspect]
     Active Substance: IBUPROFEN
     Dosage: UNK
  3. ADVIL [Suspect]
     Active Substance: IBUPROFEN
     Indication: ARTHROPATHY
     Dosage: TAKE 1 OR 2 TABLETS BEFORE GOING OUT AND PLAYING
     Dates: start: 199207, end: 199212

REACTIONS (4)
  - Gastric ulcer perforation [Recovered/Resolved]
  - Abdominal pain upper [Recovered/Resolved]
  - Gastric haemorrhage [Recovered/Resolved]
  - Intentional product misuse [Recovered/Resolved]

NARRATIVE: CASE EVENT DATE: 199207
